FAERS Safety Report 7888440-X (Version None)
Quarter: 2011Q4

REPORT INFORMATION
  Report Type: 
  Country: None (occurrence: None)
  Receive Date: 20111103
  Receipt Date: 20111102
  Transmission Date: 20120403
  Serious: Yes (Death, Other)
  Sender: FDA-Public Use
  Company Number: VE-PFIZER INC-2011262211

PATIENT
  Age: 53 Year
  Sex: Male

DRUGS (5)
  1. LIPITOR [Suspect]
     Dosage: 80 MG ONCE A DAY
     Route: 048
     Dates: start: 19980101
  2. HYZAAR [Concomitant]
     Indication: HYPERTENSION
     Dosage: UNK
     Route: 048
  3. PLAVIX [Concomitant]
     Dosage: 75 MG ONCE A DAY
  4. GLUCOFAGE [Concomitant]
     Indication: DIABETES MELLITUS
     Dosage: 500 MG, 1X/DAY
     Route: 048
  5. CORASPIN [Concomitant]
     Dosage: 81 MG ONCE A DAY
     Route: 048

REACTIONS (3)
  - CORONARY ARTERIAL STENT INSERTION [None]
  - CATHETERISATION CARDIAC [None]
  - MYOCARDIAL INFARCTION [None]
